FAERS Safety Report 21730003 (Version 2)
Quarter: 2023Q1

REPORT INFORMATION
  Report Type: Spontaneous
  Country: US (occurrence: US)
  Receive Date: 20221214
  Receipt Date: 20230112
  Transmission Date: 20230418
  Serious: No
  Sender: FDA-Public Use
  Company Number: US-ALKERMES INC.-ALK-2022-005933

PATIENT
  Age: 35 Year
  Sex: Female
  Weight: 128.62 kg

DRUGS (1)
  1. VIVITROL [Suspect]
     Active Substance: NALTREXONE
     Indication: Drug use disorder
     Dosage: 380 MILLIGRAM, QMO
     Route: 030
     Dates: start: 20220112, end: 20220601

REACTIONS (1)
  - Dysarthria [Recovering/Resolving]

NARRATIVE: CASE EVENT DATE: 20220112
